FAERS Safety Report 4286032-5 (Version None)
Quarter: 2004Q1

REPORT INFORMATION
  Report Type: 
  Country: None (occurrence: None)
  Receive Date: 20040205
  Receipt Date: 20030610
  Transmission Date: 20041129
  Serious: Yes (Hospitalization)
  Sender: FDA-Public Use
  Company Number: PHHO2003ES07390

PATIENT
  Age: 66 Year
  Sex: Female

DRUGS (2)
  1. CYCLOSPORINE [Suspect]
     Indication: IMMUNOSUPPRESSANT DRUG THERAPY
  2. AREDIA [Suspect]
     Indication: OSTEODYSTROPHY
     Dosage: TREATMENT PHASE
     Dates: start: 20020327

REACTIONS (1)
  - DELIRIUM [None]
